FAERS Safety Report 11145381 (Version 1)
Quarter: 2015Q2

REPORT INFORMATION
  Report Type: Spontaneous
  Country: MX (occurrence: MX)
  Receive Date: 20150528
  Receipt Date: 20150528
  Transmission Date: 20150821
  Serious: Yes (Death, Hospitalization)
  Sender: FDA-Public Use
  Company Number: MX-NOVOPROD-450217

PATIENT
  Age: 67 Year
  Sex: Male

DRUGS (2)
  1. NOVOMIX 30 FLEXPEN [Suspect]
     Active Substance: INSULIN ASPART
     Indication: PRODUCT USED FOR UNKNOWN INDICATION
     Dosage: UNK
     Route: 065
  2. METFORMIN [Concomitant]
     Active Substance: METFORMIN HYDROCHLORIDE
     Dosage: UNK
     Route: 065

REACTIONS (2)
  - Drug dose omission [Unknown]
  - Myocardial infarction [Fatal]

NARRATIVE: CASE EVENT DATE: 201103
